FAERS Safety Report 19804255 (Version 1)
Quarter: 2021Q3

REPORT INFORMATION
  Report Type: Spontaneous
  Country: US (occurrence: US)
  Receive Date: 20210908
  Receipt Date: 20210908
  Transmission Date: 20211014
  Serious: No
  Sender: FDA-Public Use
  Company Number: US-FARMAPROD-202104-0587

PATIENT
  Sex: Male
  Weight: 127.12 kg

DRUGS (4)
  1. OXERVATE [Suspect]
     Active Substance: CENEGERMIN-BKBJ
     Indication: NEUROTROPHIC KERATOPATHY
     Route: 047
     Dates: start: 20201124
  2. CEQUA [Concomitant]
     Active Substance: CYCLOSPORINE
  3. METFORMIN ER GASTRIC [Concomitant]
  4. GENTEAL TEARS (MILD) [Concomitant]
     Active Substance: DEXTRAN 70\HYPROMELLOSE 2910 (4000 MPA.S)
     Dosage: 0.1%?0.3%

REACTIONS (1)
  - Wrong technique in product usage process [Unknown]
